FAERS Safety Report 19797970 (Version 1)
Quarter: 2021Q3

REPORT INFORMATION
  Report Type: Report from Study
  Country: CA (occurrence: CA)
  Receive Date: 20210907
  Receipt Date: 20210907
  Transmission Date: 20211014
  Serious: Yes (Other)
  Sender: FDA-Public Use
  Company Number: CA-ACCORD-237136

PATIENT
  Age: 67 Year
  Sex: Male

DRUGS (11)
  1. BICALUTAMIDE. [Suspect]
     Active Substance: BICALUTAMIDE
     Indication: BLOOD TESTOSTERONE INCREASED
     Route: 048
  2. HUMALOG [Concomitant]
     Active Substance: INSULIN LISPRO
     Dosage: 3 EVERY 1 DAYS
     Route: 065
  3. PANTOPRAZOLE [Concomitant]
     Active Substance: PANTOPRAZOLE
     Dosage: 1 EVERY 1 DAYS
     Route: 048
  4. BISOPROLOL [Concomitant]
     Active Substance: BISOPROLOL
     Dosage: 1 EVERY 1 DAYS
     Route: 048
  5. PREDNISONE. [Concomitant]
     Active Substance: PREDNISONE
     Route: 048
  6. ACETYLSALICYLIC ACID [Concomitant]
     Active Substance: ASPIRIN
     Dosage: 1 EVERY 1 DAYS
     Route: 048
  7. ATORVASTATIN [Concomitant]
     Active Substance: ATORVASTATIN
     Dosage: 1 EVERY 1 DAYS
     Route: 048
  8. TELMISARTAN. [Concomitant]
     Active Substance: TELMISARTAN
     Dosage: 1 EVERY 1 DAYS
     Route: 048
  9. VEDOLIZUMAB [Suspect]
     Active Substance: VEDOLIZUMAB
     Indication: COLITIS ULCERATIVE
     Route: 042
  10. LANTUS [Concomitant]
     Active Substance: INSULIN GLARGINE
     Dosage: SUBCUTANEOUS SOLUTION, 1 EVERY 1 DAYS
     Route: 058
  11. IRON [Concomitant]
     Active Substance: IRON
     Dosage: 1 EVERY 1 DAYS
     Route: 048

REACTIONS (20)
  - Prostate cancer metastatic [Not Recovered/Not Resolved]
  - Urinary tract infection [Not Recovered/Not Resolved]
  - Constipation [Not Recovered/Not Resolved]
  - Depression [Not Recovered/Not Resolved]
  - Urinary retention [Not Recovered/Not Resolved]
  - Vomiting [Not Recovered/Not Resolved]
  - Faeces discoloured [Not Recovered/Not Resolved]
  - Metastases to lung [Not Recovered/Not Resolved]
  - Prostatic specific antigen increased [Not Recovered/Not Resolved]
  - Decreased appetite [Not Recovered/Not Resolved]
  - Hypoaesthesia [Not Recovered/Not Resolved]
  - Drug ineffective [Not Recovered/Not Resolved]
  - Fatigue [Not Recovered/Not Resolved]
  - Diarrhoea [Not Recovered/Not Resolved]
  - Dysuria [Not Recovered/Not Resolved]
  - Secretion discharge [Not Recovered/Not Resolved]
  - Metastases to bone [Not Recovered/Not Resolved]
  - Pollakiuria [Not Recovered/Not Resolved]
  - Urticaria [Not Recovered/Not Resolved]
  - Weight decreased [Not Recovered/Not Resolved]
